FAERS Safety Report 11150748 (Version 2)
Quarter: 2015Q3

REPORT INFORMATION
  Report Type: Spontaneous
  Country: US (occurrence: US)
  Receive Date: 20150601
  Receipt Date: 20150721
  Transmission Date: 20151125
  Serious: Yes (Other)
  Sender: FDA-Public Use
  Company Number: US-JAZZ-2015-US-007639

PATIENT

DRUGS (22)
  1. CHOLECALCIFEROL [Concomitant]
     Active Substance: CHOLECALCIFEROL
     Dosage: 50000 IU, QD
     Route: 048
  2. ONDANSETRON [Concomitant]
     Active Substance: ONDANSETRON
     Dosage: 8 MG, QD
     Route: 048
  3. SERTRALINE HCL [Concomitant]
     Active Substance: SERTRALINE HYDROCHLORIDE
     Dosage: 100 MG, QD
     Route: 048
  4. SUMATRIPTAN. [Concomitant]
     Active Substance: SUMATRIPTAN
     Dosage: 25 MG, UNK
     Route: 048
  5. SULFAMETHOXAZOLE-TRIMETHOPRIM (SMZ) [Concomitant]
     Active Substance: SULFAMETHOXAZOLE\TRIMETHOPRIM
     Dosage: 800-160 MG, QD
     Route: 048
  6. SOLU-CORTEF [Concomitant]
     Active Substance: HYDROCORTISONE SODIUM SUCCINATE
     Dosage: 100 MG, QD
     Route: 042
     Dates: start: 20150307, end: 20150307
  7. INSULIN LISPRO [Concomitant]
     Active Substance: INSULIN LISPRO
     Dosage: 10 IU, UNK
     Route: 058
  8. NPH INSULIN [Concomitant]
     Active Substance: INSULIN BEEF
     Dosage: 10 IU, QD
     Route: 058
  9. LOPERAMIDE HCL [Concomitant]
     Active Substance: LOPERAMIDE HYDROCHLORIDE
     Dosage: 2-4 MG, UNK
     Route: 048
  10. SIMETHICONE (DIMETHICONE) [Concomitant]
     Active Substance: DIMETHICONE
     Dosage: 80-160 MG, QD
     Route: 048
  11. ERWINAZE [Suspect]
     Active Substance: ASPARAGINASE ERWINIA CHRYSANTHEMI
     Indication: B PRECURSOR TYPE ACUTE LEUKAEMIA
     Dosage: 50000 IU, UNK
     Route: 042
     Dates: start: 20150307, end: 20150307
  12. TYLENOL [Concomitant]
     Active Substance: ACETAMINOPHEN
     Dosage: 650 MG, QD
     Route: 048
     Dates: start: 20150307, end: 20150307
  13. ACYCLOVIR. [Concomitant]
     Active Substance: ACYCLOVIR
     Dosage: 800 MG, QD
     Route: 048
  14. DRONABINOL. [Concomitant]
     Active Substance: DRONABINOL
     Dosage: 10 MG, QD
     Route: 048
  15. TEMAZEPAM. [Concomitant]
     Active Substance: TEMAZEPAM
     Dosage: 15 MG, QD
  16. PROCHLORPERAZINE EDISYLATE. [Concomitant]
     Active Substance: PROCHLORPERAZINE EDISYLATE
     Dosage: 10 MG, QD
     Route: 048
  17. LORAZEPAM. [Concomitant]
     Active Substance: LORAZEPAM
     Dosage: 0.5-1 MG, UNK
     Route: 048
  18. ZOLPIDEM [Concomitant]
     Active Substance: ZOLPIDEM\ZOLPIDEM TARTRATE
     Dosage: 10 MG, QD
     Route: 048
  19. LORATADINE. [Concomitant]
     Active Substance: LORATADINE
     Dosage: 10 MG, QD
     Dates: start: 20150307, end: 20150307
  20. HYDROMORPHONE HCL [Concomitant]
     Active Substance: HYDROMORPHONE HYDROCHLORIDE
     Dosage: 2-4 MG, UNK
     Route: 048
  21. OXYCODONE [Concomitant]
     Active Substance: OXYCODONE
     Dosage: 5-15 MG, UNK
     Route: 048
  22. POTASSIUM CHLORIDE. [Concomitant]
     Active Substance: POTASSIUM CHLORIDE
     Indication: BLOOD POTASSIUM DECREASED
     Dosage: 40 MEQ, UNK
     Route: 048

REACTIONS (1)
  - Anaphylactic reaction [Recovered/Resolved]

NARRATIVE: CASE EVENT DATE: 20150307
